FAERS Safety Report 4781037-X (Version None)
Quarter: 2005Q3

REPORT INFORMATION
  Report Type: 
  Country: None (occurrence: None)
  Receive Date: 20050926
  Receipt Date: 20050915
  Transmission Date: 20060218
  Serious: Yes (Hospitalization)
  Sender: FDA-Public Use
  Company Number: 05FRA0184

PATIENT
  Age: 59 Year
  Sex: Female

DRUGS (1)
  1. GLIADEL [Suspect]
     Indication: GLIOMA
     Dosage: 61.6 MG (8 WAFERS 7.7 MG/EACH)
     Dates: start: 20050610

REACTIONS (6)
  - ABDOMINAL PAIN [None]
  - CHILLS [None]
  - CSF GLUCOSE DECREASED [None]
  - ENCEPHALITIS [None]
  - HYPERHIDROSIS [None]
  - NAUSEA [None]
